FAERS Safety Report 21360924 (Version 1)
Quarter: 2022Q3

REPORT INFORMATION
  Report Type: Spontaneous
  Country: FI (occurrence: FI)
  Receive Date: 20220921
  Receipt Date: 20220921
  Transmission Date: 20221027
  Serious: Yes (Death, Life-Threatening, Hospitalization, Disabling, Other)
  Sender: FDA-Public Use
  Company Number: FI-Sanoswiss-000101-01

PATIENT
  Sex: Male

DRUGS (8)
  1. BUPRENORPHINE [Interacting]
     Active Substance: BUPRENORPHINE
     Indication: Pain
     Dosage: PATIENT TOOK SIX TABLETS FOR PAIN AT HOME WITHOUT SPECIFYING THE MEDICINES IN MORE DETAIL
     Route: 065
  2. PREGABALIN [Interacting]
     Active Substance: PREGABALIN
     Indication: Pain
     Dosage: PATIENT TOOK SIX TABLETS FOR PAIN AT HOME WITHOUT SPECIFYING THE MEDICINES IN MORE DETAIL
     Route: 065
  3. DIAZEPAM [Interacting]
     Active Substance: DIAZEPAM
     Indication: Prophylaxis against alcoholic withdrawal syndrome
     Dosage: UNK
     Route: 065
  4. GABAPENTIN [Interacting]
     Active Substance: GABAPENTIN
     Indication: Pain
     Dosage: PATIENT TOOK SIX TABLETS FOR PAIN AT HOME WITHOUT SPECIFYING THE MEDICINES IN MORE DETAIL
     Route: 065
  5. METOCLOPRAMIDE [Concomitant]
     Active Substance: METOCLOPRAMIDE
     Indication: Product used for unknown indication
     Dosage: UNK
     Route: 065
  6. NALOXONE HYDROCHLORIDE [Concomitant]
     Active Substance: NALOXONE HYDROCHLORIDE
     Indication: Product used for unknown indication
     Dosage: UNK
     Route: 065
  7. OXYCODONE HYDROCHLORIDE [Concomitant]
     Active Substance: OXYCODONE HYDROCHLORIDE
     Indication: Product used for unknown indication
     Dosage: UNK
     Route: 065
  8. ACETAMINOPHEN [Concomitant]
     Active Substance: ACETAMINOPHEN
     Indication: Product used for unknown indication
     Dosage: UNK
     Route: 065

REACTIONS (9)
  - Death [Fatal]
  - Depressed level of consciousness [Fatal]
  - Aspiration [Fatal]
  - Accidental poisoning [Fatal]
  - Productive cough [Fatal]
  - Miosis [Fatal]
  - Aspiration [Fatal]
  - Hypoxia [Fatal]
  - Blood pressure decreased [Fatal]
